FAERS Safety Report 5031244-6 (Version None)
Quarter: 2006Q2

REPORT INFORMATION
  Report Type: 
  Country: None (occurrence: None)
  Receive Date: 20060615
  Receipt Date: 20060606
  Transmission Date: 20061013
  Serious: Yes (Death, Hospitalization)
  Sender: FDA-Public Use
  Company Number: 2006-01362

PATIENT
  Age: 74 Year
  Sex: Female
  Weight: 53.0255 kg

DRUGS (1)
  1. VELCADE [Suspect]
     Indication: MULTIPLE MYELOMA
     Dosage: 2.00 MG INTRAVENOUS
     Route: 042
     Dates: start: 20050516, end: 20050818

REACTIONS (2)
  - PNEUMONIA [None]
  - RESPIRATORY TRACT INFECTION [None]
